FAERS Safety Report 24373078 (Version 9)
Quarter: 2025Q4

REPORT INFORMATION
  Report Type: Report from Study
  Country: US (occurrence: US)
  Receive Date: 20240927
  Receipt Date: 20251002
  Transmission Date: 20260118
  Serious: Yes (Other)
  Sender: SUNOVION
  Company Number: US-SUMITOMO PHARMA SWITZERLAND GMBH-2024SPA002558

PATIENT
  Age: 70 Year
  Sex: Male

DRUGS (2)
  1. ORGOVYX [Suspect]
     Active Substance: RELUGOLIX
     Indication: Prostate cancer
     Dosage: 120 MG, QD
     Route: 048
     Dates: start: 20240820
  2. FLECAINIDE [Suspect]
     Active Substance: FLECAINIDE
     Indication: Atrial fibrillation
     Dosage: UNK

REACTIONS (15)
  - Atrial fibrillation [Unknown]
  - Colonoscopy [Unknown]
  - Dyspnoea [Unknown]
  - Pyrexia [Unknown]
  - Tremor [Unknown]
  - Tachycardia [Unknown]
  - Plantar fasciitis [Unknown]
  - Body temperature increased [Unknown]
  - Lethargy [Unknown]
  - Neuralgia [Unknown]
  - Alopecia [Unknown]
  - Hot flush [Unknown]
  - Pain in extremity [Unknown]
  - Incorrect dose administered [Recovered/Resolved]
  - Product dose omission in error [Recovered/Resolved]
